FAERS Safety Report 4638333-6 (Version None)
Quarter: 2005Q2

REPORT INFORMATION
  Report Type: 
  Country: None (occurrence: None)
  Receive Date: 20050418
  Receipt Date: 20041119
  Transmission Date: 20051028
  Serious: Yes (Disabling)
  Sender: FDA-Public Use
  Company Number: DE-MERCK-0411DEU00426

PATIENT
  Age: 40 Year
  Sex: Male
  Weight: 94 kg

DRUGS (2)
  1. VIOXX [Suspect]
     Indication: BONE PAIN
     Route: 048
     Dates: start: 20020101, end: 20040101
  2. VIOXX [Suspect]
     Indication: ARTHRALGIA
     Route: 048
     Dates: start: 20020101, end: 20040101

REACTIONS (5)
  - ARRHYTHMIA [None]
  - CEREBELLAR INFARCTION [None]
  - NERVOUS SYSTEM DISORDER [None]
  - SCAR [None]
  - SLEEP DISORDER [None]
